FAERS Safety Report 9297818 (Version 3)
Quarter: 2013Q3

REPORT INFORMATION
  Report Type: Spontaneous
  Country: DE (occurrence: DE)
  Receive Date: 20130520
  Receipt Date: 20130731
  Transmission Date: 20140515
  Serious: Yes (Other)
  Sender: FDA-Public Use
  Company Number: DE-JNJFOC-20121209168

PATIENT
  Age: 78 Year
  Sex: Male
  Weight: 110 kg

DRUGS (8)
  1. ZYTIGA [Suspect]
     Indication: PROSTATE CANCER
     Route: 048
     Dates: start: 20121213
  2. ZYTIGA [Suspect]
     Indication: PROSTATE CANCER
     Dosage: 250 MG X 4 = 1000 MG
     Route: 048
     Dates: start: 20120309, end: 20121211
  3. PREDNISONE [Concomitant]
     Indication: PRODUCT USED FOR UNKNOWN INDICATION
     Route: 065
     Dates: start: 20120309
  4. GLIMEPIRIDE [Concomitant]
     Indication: TYPE 2 DIABETES MELLITUS
     Route: 065
  5. CONCOR [Concomitant]
     Indication: CARDIAC DISORDER
     Route: 065
  6. KALINOR-RETARD P [Concomitant]
     Indication: CARDIAC DISORDER
     Route: 065
  7. DECORTIN H [Concomitant]
     Indication: PROSTATIC DISORDER
     Route: 065
  8. SIMVASTATIN [Concomitant]
     Indication: CARDIAC DISORDER
     Route: 065

REACTIONS (3)
  - Arrhythmia [Recovered/Resolved]
  - Ventricular extrasystoles [Recovered/Resolved]
  - Cardiac disorder [Recovered/Resolved]
